FAERS Safety Report 18383913 (Version 3)
Quarter: 2021Q4

REPORT INFORMATION
  Report Type: Report from Study
  Country: US (occurrence: US)
  Receive Date: 20201014
  Receipt Date: 20211116
  Transmission Date: 20220303
  Serious: Yes (Hospitalization)
  Sender: FDA-Public Use
  Company Number: US-TAIHO ONCOLOGY INC-EU-2020-03666

PATIENT
  Age: 67 Year
  Sex: Male

DRUGS (9)
  1. LONSURF [Suspect]
     Active Substance: TIPIRACIL HYDROCHLORIDE\TRIFLURIDINE
     Indication: Colon cancer
     Dosage: CYCLE NUMBER UNKNOWN
     Route: 048
     Dates: start: 20200908
  2. AVASTIN [Suspect]
     Active Substance: BEVACIZUMAB
     Indication: Product used for unknown indication
     Route: 042
  3. ATROPINE\DIPHENOXYLATE [Concomitant]
     Active Substance: ATROPINE\DIPHENOXYLATE
  4. DOXYCYCLINE HYCLATE [Concomitant]
     Active Substance: DOXYCYCLINE HYCLATE
  5. OMEPRAZOLE [Concomitant]
     Active Substance: OMEPRAZOLE
  6. ONDANSETRON [Concomitant]
     Active Substance: ONDANSETRON
  7. PROGRAF [Concomitant]
     Active Substance: TACROLIMUS
  8. ATROPINE SULFATE [Concomitant]
     Active Substance: ATROPINE SULFATE
  9. DIPHENOXYLATE HYDROCHLORIDE [Concomitant]
     Active Substance: DIPHENOXYLATE HYDROCHLORIDE

REACTIONS (6)
  - Malnutrition [Unknown]
  - Dehydration [Unknown]
  - Weight decreased [Unknown]
  - Rash [Unknown]
  - Diarrhoea [Unknown]
  - Decreased appetite [Unknown]
